FAERS Safety Report 16200052 (Version 1)
Quarter: 2019Q2

REPORT INFORMATION
  Report Type: Spontaneous
  Country: SE (occurrence: SE)
  Receive Date: 20190415
  Receipt Date: 20190415
  Transmission Date: 20190711
  Serious: Yes (Other)
  Sender: FDA-Public Use
  Company Number: SE-TEVA-2019-SE-1037100

PATIENT
  Age: 52 Year
  Sex: Male
  Weight: 83 kg

DRUGS (5)
  1. GENOTROPIN [Concomitant]
     Active Substance: SOMATROPIN
     Dates: start: 2009
  2. LEVAXIN [Concomitant]
     Active Substance: LEVOTHYROXINE SODIUM
     Dates: start: 2009
  3. NEBIDO [Concomitant]
     Active Substance: TESTOSTERONE UNDECANOATE
     Dates: start: 2009
  4. HYDROCORTISONE. [Concomitant]
     Active Substance: HYDROCORTISONE
     Dates: start: 2009
  5. FINASTERID TEVA 5 MG FILMDRAGERAD TABLETT [Suspect]
     Active Substance: FINASTERIDE
     Indication: BENIGN PROSTATIC HYPERPLASIA
     Dates: start: 201805, end: 201902

REACTIONS (5)
  - Memory impairment [Not Recovered/Not Resolved]
  - Depression [Not Recovered/Not Resolved]
  - Anxiety [Not Recovered/Not Resolved]
  - Disturbance in attention [Not Recovered/Not Resolved]
  - Nervousness [Not Recovered/Not Resolved]

NARRATIVE: CASE EVENT DATE: 201807
